FAERS Safety Report 12932706 (Version 1)
Quarter: 2016Q4

REPORT INFORMATION
  Report Type: Spontaneous
  Country: JP (occurrence: JP)
  Receive Date: 20161111
  Receipt Date: 20161111
  Transmission Date: 20170207
  Serious: Yes (Death, Other)
  Sender: FDA-Public Use
  Company Number: JP-UCBSA-2016041659

PATIENT
  Age: 69 Year
  Sex: Female

DRUGS (2)
  1. E KEPPRA [Suspect]
     Active Substance: LEVETIRACETAM
     Indication: SEIZURE
     Dosage: 2000 MG, ONCE DAILY (QD)
     Route: 048
     Dates: start: 20160720
  2. LEVETIRACETAM. [Concomitant]
     Active Substance: LEVETIRACETAM
     Indication: VOMITING
     Dosage: UNK
     Dates: start: 20160709, end: 20160719

REACTIONS (3)
  - Brain neoplasm [Fatal]
  - Acute kidney injury [Fatal]
  - Off label use [Unknown]

NARRATIVE: CASE EVENT DATE: 2016
